FAERS Safety Report 13045554 (Version 1)
Quarter: 2016Q4

REPORT INFORMATION
  Report Type: Spontaneous
  Country: US (occurrence: US)
  Receive Date: 20161220
  Receipt Date: 20161220
  Transmission Date: 20170207
  Serious: Yes (Other)
  Sender: FDA-Public Use
  Company Number: None

PATIENT
  Age: 54 Year
  Sex: Female
  Weight: 85.81 kg

DRUGS (1)
  1. PAROXETINE 20 MG (GENERIC) [Suspect]
     Active Substance: PAROXETINE
     Indication: DEPRESSION
     Route: 048
     Dates: start: 20161121, end: 20161128

REACTIONS (2)
  - Homicidal ideation [None]
  - Irritability [None]

NARRATIVE: CASE EVENT DATE: 20161128
